FAERS Safety Report 4682316-7 (Version None)
Quarter: 2005Q2

REPORT INFORMATION
  Report Type: 
  Country: None (occurrence: None)
  Receive Date: 20050606
  Receipt Date: 20050413
  Transmission Date: 20051028
  Serious: Yes (Other)
  Sender: FDA-Public Use
  Company Number: FR-JNJFOC-20050403195

PATIENT
  Sex: Female

DRUGS (2)
  1. RISPERDAL [Suspect]
     Indication: SCHIZOPHRENIA
     Route: 049
  2. TRANXENE [Concomitant]

REACTIONS (6)
  - ACNE [None]
  - AMENORRHOEA [None]
  - GALACTORRHOEA [None]
  - HIRSUTISM [None]
  - HYPERPROLACTINAEMIA [None]
  - PITUITARY TUMOUR BENIGN [None]
